FAERS Safety Report 4358841-5 (Version None)
Quarter: 2004Q2

REPORT INFORMATION
  Report Type: 
  Country: None (occurrence: None)
  Receive Date: 20040511
  Receipt Date: 20040430
  Transmission Date: 20050107
  Serious: Yes (Hospitalization)
  Sender: FDA-Public Use
  Company Number: TPA2004A00375

PATIENT
  Age: 82 Year
  Sex: Male
  Weight: 111.1313 kg

DRUGS (19)
  1. ACTOS [Suspect]
     Indication: DIABETES MELLITUS NON-INSULIN-DEPENDENT
     Dosage: 30 MG, 1 IN 1 D,  PER ORAL
     Route: 048
     Dates: start: 20030101, end: 20040121
  2. ACTOS [Suspect]
     Indication: DIABETES MELLITUS NON-INSULIN-DEPENDENT
     Dosage: 45 MG, 1 IN 1 D, PER ORAL
     Route: 048
     Dates: start: 20040226
  3. ACTOS [Suspect]
     Indication: DIABETES MELLITUS NON-INSULIN-DEPENDENT
     Dosage: 45 MG, 2 IN 1 D, PER ORAL
     Route: 048
  4. METOPROLOL (METOPROLOL) (50 MILLIGRAM, TABLETS) [Concomitant]
  5. LANTUS (INSULIN GLARGINE) (22 IU (INTERNATIONAL UNIT), INJECTION) [Concomitant]
  6. ARMOUR THYROID (THYROID) (60 MILLIGRAM) [Concomitant]
  7. SYNTHROID (LEVOTHYROXINE SODIUM) (0.1 MILLIGRAM) [Concomitant]
  8. NOVLON N (INSULIN HUMAN INJECTION, ISOPHANE) (15 IU (INTERNATIONAL UNI [Concomitant]
  9. FOLTZ (TRIOBE) (TABLETS) [Concomitant]
  10. PROTONIX (PANTOPRAZOLE) (40 MILLIGRAM) [Concomitant]
  11. AMIODARONE (AMIODARONE) (200 MILLIGRAM) [Concomitant]
  12. FERO-FOLIC (IROFOL C) (500 MILLIGRAM) [Concomitant]
  13. ZETIA (EZETIMIBE) (10 MILLIGRAM) [Concomitant]
  14. KLOR-CON (POTASSIUM CHLORIDE) (10 MILLIEQUIVALENTS) [Concomitant]
  15. ASPIRIN (ACETYLSALICYLIC ACID) (81 MILLIGRAM) [Concomitant]
  16. VASOTEC (ENALAPRIL MALEATE) (5 MILLIGRAM, TABLETS) [Concomitant]
  17. VITAMIN C (ASCORBIC ACID) [Concomitant]
  18. VITAMIN E [Concomitant]
  19. ISOSORBIDE (ISOSORBIDE) [Concomitant]

REACTIONS (7)
  - ANGINA PECTORIS [None]
  - ARTERIAL OCCLUSIVE DISEASE [None]
  - DYSPNOEA EXERTIONAL [None]
  - OEDEMA PERIPHERAL [None]
  - RESPIRATORY TRACT INFECTION [None]
  - SMALL INTESTINAL OBSTRUCTION [None]
  - WEIGHT INCREASED [None]
